FAERS Safety Report 19890261 (Version 1)
Quarter: 2021Q3

REPORT INFORMATION
  Report Type: Spontaneous
  Country: US (occurrence: US)
  Receive Date: 20210928
  Receipt Date: 20210928
  Transmission Date: 20211014
  Serious: Yes (Other)
  Sender: FDA-Public Use
  Company Number: None

PATIENT
  Age: 60 Year
  Sex: Male
  Weight: 109.8 kg

DRUGS (1)
  1. CASIRIVIMAB. [Suspect]
     Active Substance: CASIRIVIMAB
     Indication: COVID-19

REACTIONS (4)
  - Infusion related reaction [None]
  - Chills [None]
  - Musculoskeletal discomfort [None]
  - Tremor [None]

NARRATIVE: CASE EVENT DATE: 20210928
